FAERS Safety Report 9717831 (Version 1)
Quarter: 2013Q4

REPORT INFORMATION
  Report Type: Spontaneous
  Country: US (occurrence: US)
  Receive Date: 20131125
  Receipt Date: 20131125
  Transmission Date: 20140711
  Serious: No
  Sender: FDA-Public Use
  Company Number: US-VIVUS-2012V1000254

PATIENT
  Age: 55 Year
  Sex: Male
  Weight: 122.58 kg

DRUGS (11)
  1. QSYMIA [Suspect]
     Indication: WEIGHT DECREASED
     Route: 048
     Dates: start: 20121119, end: 20121119
  2. QSYMIA [Suspect]
     Route: 048
     Dates: start: 201211, end: 201211
  3. LANTUS [Concomitant]
     Dosage: DAILY DOSE: 68 UNITS,
  4. NOVOLOG [Concomitant]
     Dosage: DAILY DOSE: 10 UNITS,
  5. METFORMIN [Concomitant]
  6. FISH OIL [Concomitant]
  7. POTASSIUM [Concomitant]
  8. TRIBENZOR [Concomitant]
  9. TRICOR [Concomitant]
  10. NITROGLYCERIN [Concomitant]
     Indication: CHEST PAIN
  11. LAMICTAL [Concomitant]

REACTIONS (5)
  - Dyspnoea [Not Recovered/Not Resolved]
  - Flushing [Not Recovered/Not Resolved]
  - Pruritus [Not Recovered/Not Resolved]
  - Heart rate increased [Not Recovered/Not Resolved]
  - Back pain [Not Recovered/Not Resolved]
